FAERS Safety Report 10538029 (Version 3)
Quarter: 2014Q4

REPORT INFORMATION
  Report Type: Report from Study
  Country: FR (occurrence: FR)
  Receive Date: 20141023
  Receipt Date: 20141202
  Transmission Date: 20150529
  Serious: Yes (Death, Other)
  Sender: FDA-Public Use
  Company Number: FR-VERTEX PHARMACEUTICALS-2014-004372

PATIENT

DRUGS (1)
  1. TELAPREVIR [Suspect]
     Active Substance: TELAPREVIR
     Indication: HEPATITIS C
     Dosage: UNK
     Route: 048
     Dates: start: 201304

REACTIONS (6)
  - Skin reaction [Unknown]
  - Condition aggravated [Unknown]
  - Hepatocellular carcinoma [Fatal]
  - Drug ineffective [Unknown]
  - Anaemia [Unknown]
  - Peritonitis [Fatal]
